FAERS Safety Report 9916238 (Version 2)
Quarter: 2014Q1

REPORT INFORMATION
  Report Type: Spontaneous
  Country: US (occurrence: US)
  Receive Date: 20140221
  Receipt Date: 20140221
  Transmission Date: 20141002
  Serious: Yes (Other)
  Sender: FDA-Public Use
  Company Number: US-GE HEALTHCARE MEDICAL DIAGNOSTICS-OSCN-PR-0712S-0494

PATIENT
  Sex: Male

DRUGS (3)
  1. OMNISCAN [Suspect]
     Indication: ARTERIAL BYPASS OPERATION
     Dates: start: 20030917, end: 20030917
  2. OMNISCAN [Suspect]
     Indication: SKIN ULCER
     Dates: start: 20031209, end: 20031209
  3. OMNISCAN [Suspect]
     Indication: PERIPHERAL VASCULAR DISORDER

REACTIONS (1)
  - Nephrogenic systemic fibrosis [Not Recovered/Not Resolved]
